FAERS Safety Report 5403421-3 (Version None)
Quarter: 2007Q3

REPORT INFORMATION
  Report Type: 
  Country: None (occurrence: None)
  Receive Date: 20070730
  Receipt Date: 20070717
  Transmission Date: 20080115
  Serious: Yes (Death, Other)
  Sender: FDA-Public Use
  Company Number: 2007JP003390

PATIENT
  Age: 22 Year
  Sex: Male

DRUGS (7)
  1. PROGRAF [Suspect]
     Indication: RENAL TRANSPLANT
  2. BASILIXIMAB (BASILIXIMAB) FORMULATION UNKNOWN [Concomitant]
  3. MYCOPHENOLATE MOFETIL [Concomitant]
  4. STEROID FORMULATION UNKNOWN [Concomitant]
  5. GAMMA GLOBULIN (IMMUNOGLOBULIN HUMAN NORMAL) FORMULATION UNKNOWN [Concomitant]
  6. GANCICLOVIR (GANCICLOVIR) FORMULATION UNKNOWN [Concomitant]
  7. ACICLOVIR (ACICLOVIR) FORMULATION UNKNOWN [Concomitant]

REACTIONS (8)
  - DUODENAL ULCER PERFORATION [None]
  - EPSTEIN-BARR VIRUS INFECTION [None]
  - GASTROINTESTINAL HAEMORRHAGE [None]
  - HISTIOCYTOSIS HAEMATOPHAGIC [None]
  - HYPERTHERMIA [None]
  - MALAISE [None]
  - SEPSIS [None]
  - THROMBOSIS [None]
